FAERS Safety Report 9224231 (Version 1)
Quarter: 2013Q1

REPORT INFORMATION
  Report Type: Spontaneous
  Country: US (occurrence: None)
  Receive Date: 20120914
  Receipt Date: 20120914
  Transmission Date: 20140127
  Serious: No
  Sender: FDA-Public Use
  Company Number: JPI-P-016726

PATIENT
  Age: 15 Year
  Sex: Female
  Weight: 70.76 kg

DRUGS (2)
  1. XYREM (500 MILLIGRAM/MILLILITERS, SOLUTION) (SODIUM OXYBATE) [Suspect]
     Indication: NARCOLEPSY
     Route: 048
  2. NARCOLEPSY [Concomitant]

REACTIONS (6)
  - Weight decreased [None]
  - Decreased appetite [None]
  - Insomnia [None]
  - Nausea [None]
  - Vomiting [None]
  - Retching [None]
